FAERS Safety Report 8164506-4 (Version None)
Quarter: 2012Q1

REPORT INFORMATION
  Report Type: 
  Country: None (occurrence: None)
  Receive Date: 20120224
  Receipt Date: 20120215
  Transmission Date: 20120608
  Serious: Yes (Other)
  Sender: FDA-Public Use
  Company Number: US-ASTRAZENECA-2012SE10720

PATIENT
  Age: 53 Year
  Sex: Female

DRUGS (2)
  1. PULMICORT FLEXHALER [Suspect]
     Route: 055
  2. ARIMIDEX [Concomitant]
     Route: 048

REACTIONS (3)
  - NEUROPATHY PERIPHERAL [None]
  - IMPAIRED WORK ABILITY [None]
  - NEOPLASM MALIGNANT [None]
